FAERS Safety Report 5710187-6 (Version None)
Quarter: 2008Q2

REPORT INFORMATION
  Report Type: 
  Country: None (occurrence: None)
  Receive Date: 20080418
  Receipt Date: 20080102
  Transmission Date: 20081010
  Serious: No
  Sender: FDA-Public Use
  Company Number: US-ASTRAZENECA-2008UW00203

PATIENT
  Age: 44 Year
  Sex: Female

DRUGS (5)
  1. METOPROLOL SUCCINATE [Suspect]
     Indication: ARRHYTHMIA
     Route: 048
     Dates: start: 20071001
  2. METOPROLOL SUCCINATE [Suspect]
     Indication: HYPERTENSION
     Route: 048
     Dates: start: 20071001
  3. HYDROCODONE BITARTRATE [Concomitant]
  4. PERCOCET [Concomitant]
  5. MAXALT [Concomitant]

REACTIONS (1)
  - RASH PRURITIC [None]
